FAERS Safety Report 8407694-4 (Version None)
Quarter: 2012Q2

REPORT INFORMATION
  Report Type: 
  Country: None (occurrence: None)
  Receive Date: 20120604
  Receipt Date: 20120529
  Transmission Date: 20120825
  Serious: Yes (Death, Hospitalization)
  Sender: FDA-Public Use
  Company Number: US-CELGENEUS-163-21880-12050785

PATIENT
  Age: 70 Year
  Sex: Male
  Weight: 118.7 kg

DRUGS (8)
  1. DOCETAXEL [Suspect]
     Dosage: 75 MILLIGRAM/SQ. METER
     Route: 041
     Dates: start: 20120409, end: 20120409
  2. BEVACIZUMAB [Suspect]
     Dosage: 15 MILLIGRAM/KILOGRAM
     Route: 041
     Dates: start: 20120409, end: 20120409
  3. REVLIMID [Suspect]
     Dosage: 25 MILLIGRAM
     Route: 048
     Dates: start: 20110207
  4. REVLIMID [Suspect]
     Dosage: 25 MILLIGRAM
     Route: 048
     Dates: start: 20120409, end: 20120422
  5. PREDNISONE [Suspect]
     Dosage: 5 MILLIGRAM
     Route: 048
     Dates: start: 20110207
  6. DOCETAXEL [Suspect]
     Dosage: 75 MILLIGRAM/SQ. METER
     Route: 041
     Dates: start: 20110207
  7. PREDNISONE [Suspect]
     Dosage: 5 MILLIGRAM
     Route: 048
     Dates: start: 20120409, end: 20120502
  8. BEVACIZUMAB [Suspect]
     Dosage: 15 MILLIGRAM/KILOGRAM
     Route: 041
     Dates: start: 20110207

REACTIONS (2)
  - DEATH [None]
  - SCROTAL INFECTION [None]
